FAERS Safety Report 7060086-5 (Version None)
Quarter: 2010Q4

REPORT INFORMATION
  Report Type: 
  Country: None (occurrence: None)
  Receive Date: 20101025
  Receipt Date: 20101020
  Transmission Date: 20110411
  Serious: Yes (Death)
  Sender: FDA-Public Use
  Company Number: ZA-ASTRAZENECA-2010SE49553

PATIENT
  Age: 70 Year
  Sex: Male
  Weight: 111 kg

DRUGS (7)
  1. CRESTOR [Suspect]
     Indication: MYOCARDIAL ISCHAEMIA
     Dosage: DAILY
     Route: 048
     Dates: end: 20100628
  2. LASIX [Concomitant]
     Route: 048
  3. PURICOS [Concomitant]
  4. COMBIVENT [Concomitant]
     Dosage: TWO PUFFS THREE TIMES A DAY
  5. METFORMIN [Concomitant]
  6. VECTORYL PLUS [Concomitant]
  7. ASPIRIN [Concomitant]

REACTIONS (2)
  - RENAL FAILURE ACUTE [None]
  - RHABDOMYOLYSIS [None]
